FAERS Safety Report 19210727 (Version 1)
Quarter: 2021Q2

REPORT INFORMATION
  Report Type: Report from Study
  Country: None (occurrence: TR)
  Receive Date: 20210504
  Receipt Date: 20210504
  Transmission Date: 20210717
  Serious: Yes (Death)
  Sender: FDA-Public Use
  Company Number: TR-ABBVIE-21K-161-3885911-00

PATIENT
  Age: 74 Year
  Sex: Female
  Weight: 68 kg

DRUGS (5)
  1. DUODOPA [Suspect]
     Active Substance: CARBIDOPA\LEVODOPA
  2. COVID?19 VACCINE NOS. [Concomitant]
     Active Substance: COVID-19 VACCINE NOS
     Dosage: SECOND DOSE WAS ADMINISTERED
     Route: 030
  3. DUODOPA [Suspect]
     Active Substance: CARBIDOPA\LEVODOPA
     Indication: PARKINSON^S DISEASE
     Dosage: MORNING DOSE(ML): 5.20, CONTINUOUS DOSE (ML): 2.00, EXTRA DOSE (ML): 1.00.
     Route: 050
     Dates: start: 20170515
  4. COVID?19 VACCINE NOS. [Concomitant]
     Active Substance: COVID-19 VACCINE NOS
     Indication: COVID-19 IMMUNISATION
     Dosage: FIRST DOSE WAS ADMINISTERED
     Route: 030
  5. PK MERZ [Concomitant]
     Active Substance: AMANTADINE SULFATE
     Indication: PARKINSON^S DISEASE
     Route: 048

REACTIONS (3)
  - Death [Fatal]
  - Hypophagia [Unknown]
  - Dysphagia [Unknown]

NARRATIVE: CASE EVENT DATE: 20210429
